FAERS Safety Report 7054287-X (Version None)
Quarter: 2010Q4

REPORT INFORMATION
  Report Type: 
  Country: None (occurrence: None)
  Receive Date: 20101020
  Receipt Date: 20101008
  Transmission Date: 20110411
  Serious: Yes (Hospitalization)
  Sender: FDA-Public Use
  Company Number: GB-MEDIMMUNE-MEDI-0011633

PATIENT
  Sex: Male
  Weight: 2.4 kg

DRUGS (1)
  1. SYNAGIS [Suspect]

REACTIONS (3)
  - CRYING [None]
  - MOUTH HAEMORRHAGE [None]
  - RASH [None]
